FAERS Safety Report 13589062 (Version 1)
Quarter: 2017Q2

REPORT INFORMATION
  Report Type: Spontaneous
  Country: US (occurrence: US)
  Receive Date: 20170526
  Receipt Date: 20170526
  Transmission Date: 20170830
  Serious: No
  Sender: FDA-Public Use
  Company Number: None

PATIENT
  Age: 72 Year
  Sex: Male
  Weight: 71.1 kg

DRUGS (7)
  1. TIMOLOL. [Concomitant]
     Active Substance: TIMOLOL
  2. VITAMIN D [Concomitant]
     Active Substance: CHOLECALCIFEROL
  3. COQ10 [Concomitant]
     Active Substance: UBIDECARENONE
  4. AZOPT [Concomitant]
     Active Substance: BRINZOLAMIDE
  5. AMLODIPINE [Suspect]
     Active Substance: AMLODIPINE BESYLATE
     Indication: BLOOD PRESSURE MEASUREMENT
     Dosage: ?          QUANTITY:0.5 TABLET(S);?AT BED TIME
     Route: 048
     Dates: start: 20170523, end: 20170523
  6. LUMIGAN [Concomitant]
     Active Substance: BIMATOPROST
  7. CARVEDILOL. [Concomitant]
     Active Substance: CARVEDILOL

REACTIONS (3)
  - Asthenia [None]
  - Decreased activity [None]
  - Feeling abnormal [None]

NARRATIVE: CASE EVENT DATE: 20170523
